FAERS Safety Report 8007351-2 (Version None)
Quarter: 2011Q4

REPORT INFORMATION
  Report Type: 
  Country: None (occurrence: None)
  Receive Date: 20111222
  Receipt Date: 20111222
  Transmission Date: 20120403
  Serious: Yes (Hospitalization)
  Sender: FDA-Public Use
  Company Number: None

PATIENT
  Age: 89 Year
  Sex: Male
  Weight: 67.7 kg

DRUGS (1)
  1. ASPIRIN [Suspect]
     Indication: HYPERTENSION
     Dosage: 325 MG EVERY DAY PO
     Route: 048
     Dates: start: 20090707, end: 20111122

REACTIONS (2)
  - DIZZINESS [None]
  - GASTRIC HAEMORRHAGE [None]
